FAERS Safety Report 6077662-9 (Version None)
Quarter: 2009Q1

REPORT INFORMATION
  Report Type: 
  Country: None (occurrence: None)
  Receive Date: 20090213
  Receipt Date: 20090205
  Transmission Date: 20090719
  Serious: Yes (Life-Threatening, Hospitalization, Other)
  Sender: FDA-Public Use
  Company Number: US-JNJFOC-20090202702

PATIENT
  Sex: Male
  Weight: 86.64 kg

DRUGS (7)
  1. REMICADE [Suspect]
     Indication: RHEUMATOID ARTHRITIS
     Dosage: APPROXIMATELY 4 MONTHS
     Route: 042
  2. PREVACID [Concomitant]
  3. METHOTREXATE [Concomitant]
  4. PREDNISONE [Concomitant]
  5. ACCOLATE [Concomitant]
  6. CLONIDINE HCL [Concomitant]
  7. DYAZIDE [Concomitant]

REACTIONS (1)
  - HISTOPLASMOSIS [None]
